FAERS Safety Report 6999658-2 (Version None)
Quarter: 2010Q3

REPORT INFORMATION
  Report Type: 
  Country: None (occurrence: None)
  Receive Date: 20100920
  Receipt Date: 20100309
  Transmission Date: 20110219
  Serious: No
  Sender: FDA-Public Use
  Company Number: US-ASTRAZENECA-2010SE10359

PATIENT
  Age: 56 Year
  Sex: Female
  Weight: 68 kg

DRUGS (1)
  1. SEROQUEL [Suspect]
     Indication: BIPOLAR I DISORDER
     Route: 048
     Dates: start: 20080101

REACTIONS (6)
  - CONSTIPATION [None]
  - FATIGUE [None]
  - INSOMNIA [None]
  - NASAL DISCOMFORT [None]
  - NERVOUSNESS [None]
  - WEIGHT INCREASED [None]
